FAERS Safety Report 7002148-4 (Version None)
Quarter: 2010Q3

REPORT INFORMATION
  Report Type: 
  Country: None (occurrence: None)
  Receive Date: 20100920
  Receipt Date: 20090731
  Transmission Date: 20110219
  Serious: No
  Sender: FDA-Public Use
  Company Number: US-ASTRAZENECA-2009SE06711

PATIENT
  Age: 45 Year
  Sex: Female

DRUGS (6)
  1. SEROQUEL XR [Suspect]
     Indication: BIPOLAR DISORDER
     Route: 048
  2. CELEXA [Concomitant]
  3. AMBIEN [Concomitant]
  4. YAS [Concomitant]
  5. ZOCOR [Concomitant]
  6. BENICAR [Concomitant]

REACTIONS (2)
  - AGITATION [None]
  - SWELLING [None]
